FAERS Safety Report 25110003 (Version 3)
Quarter: 2025Q2

REPORT INFORMATION
  Report Type: Spontaneous
  Country: US (occurrence: US)
  Receive Date: 20250324
  Receipt Date: 20250521
  Transmission Date: 20250716
  Serious: No
  Sender: ROCHE
  Company Number: US-ROCHE-10000239746

PATIENT
  Age: 65 Year
  Sex: Female

DRUGS (2)
  1. ACTEMRA [Suspect]
     Active Substance: TOCILIZUMAB
     Indication: Rheumatoid arthritis
     Route: 058
     Dates: start: 202502
  2. ACTEMRA [Suspect]
     Active Substance: TOCILIZUMAB
     Indication: Rheumatoid arthritis
     Route: 042
     Dates: end: 20250209

REACTIONS (9)
  - Product dispensing issue [Unknown]
  - Fatigue [Not Recovered/Not Resolved]
  - Inflammation [Unknown]
  - Product dose omission issue [Unknown]
  - Wrong technique in product usage process [Unknown]
  - Product sterility issue [Unknown]
  - Drug ineffective [Unknown]
  - Device malfunction [Unknown]
  - Syringe issue [Unknown]

NARRATIVE: CASE EVENT DATE: 20250310
